FAERS Safety Report 9605003 (Version 2)
Quarter: 2013Q4

REPORT INFORMATION
  Report Type: Spontaneous
  Country: US (occurrence: US)
  Receive Date: 20131008
  Receipt Date: 20131120
  Transmission Date: 20140711
  Serious: Yes (Hospitalization)
  Sender: FDA-Public Use
  Company Number: US-PFIZER INC-2013285941

PATIENT
  Age: 87 Year
  Sex: Female
  Weight: 74.8 kg

DRUGS (3)
  1. LYRICA [Suspect]
     Indication: DIABETIC NEUROPATHY
     Dosage: 75 MG, 2X/DAY
     Route: 048
  2. ALLOPURINOL [Concomitant]
     Dosage: 300 MG, UNK
  3. DILTIAZEM [Concomitant]
     Dosage: UNK

REACTIONS (1)
  - Thrombosis [Unknown]
